FAERS Safety Report 4967865-6 (Version None)
Quarter: 2006Q2

REPORT INFORMATION
  Report Type: 
  Country: None (occurrence: None)
  Receive Date: 20060410
  Receipt Date: 20050207
  Transmission Date: 20061013
  Serious: Yes (Hospitalization, Disabling, Other)
  Sender: FDA-Public Use
  Company Number: US-MERCK-0502USA00909

PATIENT
  Age: 61 Year
  Sex: Male
  Weight: 82 kg

DRUGS (2)
  1. VIOXX [Suspect]
     Indication: ARTHRALGIA
     Route: 048
     Dates: start: 20010101, end: 20040101
  2. VIOXX [Suspect]
     Indication: BACK PAIN
     Route: 048
     Dates: start: 20010101, end: 20040101

REACTIONS (15)
  - ARTHRALGIA [None]
  - BACK DISORDER [None]
  - BACK PAIN [None]
  - BLOOD POTASSIUM DECREASED [None]
  - COLITIS ISCHAEMIC [None]
  - CORONARY ARTERY DISEASE [None]
  - DEPRESSION [None]
  - HYPERLIPIDAEMIA [None]
  - HYPERTENSION [None]
  - LIMB INJURY [None]
  - MYOCARDIAL INFARCTION [None]
  - POLYTRAUMATISM [None]
  - ROAD TRAFFIC ACCIDENT [None]
  - VENTRICULAR FIBRILLATION [None]
  - VENTRICULAR TACHYCARDIA [None]
